FAERS Safety Report 4927117-7 (Version None)
Quarter: 2006Q1

REPORT INFORMATION
  Report Type: 
  Country: None (occurrence: None)
  Receive Date: 20060222
  Receipt Date: 20060209
  Transmission Date: 20060701
  Serious: Yes (Hospitalization)
  Sender: FDA-Public Use
  Company Number: 2006PV008665

PATIENT
  Age: 65 Year
  Sex: Female

DRUGS (11)
  1. BYETTA [Suspect]
     Dosage: 5 MCG
     Dates: start: 20060124, end: 20060203
  2. ACTOS [Concomitant]
  3. AMARYL [Concomitant]
  4. METFORMIN [Concomitant]
  5. VERAPAMIL [Concomitant]
  6. ACIPHEX [Concomitant]
  7. DIOVAN HCT [Concomitant]
  8. VYTORIN [Concomitant]
  9. RELAFEN [Concomitant]
  10. DARVOCET [Concomitant]
  11. LIDODERM [Concomitant]

REACTIONS (1)
  - HYPERTENSION [None]
